FAERS Safety Report 20963930 (Version 1)
Quarter: 2022Q2

REPORT INFORMATION
  Report Type: Spontaneous
  Country: US (occurrence: None)
  Receive Date: 20220615
  Receipt Date: 20220615
  Transmission Date: 20220721
  Serious: No
  Sender: FDA-Public Use
  Company Number: None

PATIENT
  Sex: Female

DRUGS (5)
  1. HUMIRA [Suspect]
     Active Substance: ADALIMUMAB
     Indication: Psoriasis
     Route: 058
     Dates: start: 20200122
  2. CALCIUM TAB [Concomitant]
  3. EMERGEN-C PAK VITA C [Concomitant]
  4. MULTIVITAMIN TAB DAILY [Concomitant]
  5. VITAMIN D3 TAB [Concomitant]

REACTIONS (7)
  - Biopsy lung [None]
  - Therapy interrupted [None]
  - Condition aggravated [None]
  - Loss of personal independence in daily activities [None]
  - Pain [None]
  - Upper respiratory tract infection [None]
  - Nasal congestion [None]
